FAERS Safety Report 5606443-2 (Version None)
Quarter: 2008Q1

REPORT INFORMATION
  Report Type: 
  Country: None (occurrence: None)
  Receive Date: 20080129
  Receipt Date: 20071112
  Transmission Date: 20080703
  Serious: No
  Sender: FDA-Public Use
  Company Number: A0695250A

PATIENT
  Sex: Female

DRUGS (1)
  1. WELLBUTRIN [Suspect]
     Indication: DRUG USE FOR UNKNOWN INDICATION

REACTIONS (9)
  - ADVERSE EVENT [None]
  - AMNESIA [None]
  - CRYING [None]
  - FEAR [None]
  - HEART RATE INCREASED [None]
  - HYPERHIDROSIS [None]
  - INFLUENZA LIKE ILLNESS [None]
  - NAUSEA [None]
  - TREMOR [None]
